FAERS Safety Report 7919427-6 (Version None)
Quarter: 2011Q4

REPORT INFORMATION
  Report Type: 
  Country: None (occurrence: None)
  Receive Date: 20111116
  Receipt Date: 20111116
  Transmission Date: 20120403
  Serious: Yes (Hospitalization)
  Sender: FDA-Public Use
  Company Number: None

PATIENT
  Sex: Female
  Weight: 68.4 kg

DRUGS (2)
  1. CISPLATIN [Suspect]
     Dosage: 532 MG
     Dates: end: 20111025
  2. TAXOTERE [Suspect]
     Dosage: 532 MG
     Dates: end: 20111025

REACTIONS (8)
  - PNEUMONIA [None]
  - BLOOD SODIUM DECREASED [None]
  - BLOOD CALCIUM DECREASED [None]
  - PRODUCTIVE COUGH [None]
  - WHITE BLOOD CELL COUNT DECREASED [None]
  - ASTHENIA [None]
  - DEHYDRATION [None]
  - LUNG INFILTRATION [None]
